FAERS Safety Report 7749233-7 (Version None)
Quarter: 2011Q3

REPORT INFORMATION
  Report Type: 
  Country: None (occurrence: None)
  Receive Date: 20110914
  Receipt Date: 20110905
  Transmission Date: 20111222
  Serious: Yes (Hospitalization)
  Sender: FDA-Public Use
  Company Number: AU-B.I. PHARMACEUTICALS,INC./RIDGEFIELD-2011-AU-00748AU

PATIENT
  Sex: Female
  Weight: 39 kg

DRUGS (4)
  1. LEVOTHYROXINE SODIUM [Concomitant]
  2. ACTONEL WITH CALCIUM (COPACKAGED) [Suspect]
     Dates: start: 20080101, end: 20110701
  3. PRADAXA [Suspect]
     Indication: ATRIAL FIBRILLATION
     Dates: start: 20110706
  4. AMIODARONE HCL [Concomitant]
     Dates: start: 20080101

REACTIONS (4)
  - VOMITING [None]
  - DYSPHAGIA [None]
  - PHARYNGOESOPHAGEAL DIVERTICULUM [None]
  - OESOPHAGITIS [None]
